FAERS Safety Report 12402415 (Version 2)
Quarter: 2016Q2

REPORT INFORMATION
  Report Type: Spontaneous
  Country: US (occurrence: US)
  Receive Date: 20160525
  Receipt Date: 20160527
  Transmission Date: 20160815
  Serious: No
  Sender: FDA-Public Use
  Company Number: US-SA-2016SA037666

PATIENT
  Age: 59 Year
  Sex: Male

DRUGS (14)
  1. PANTOPRAZOLE [Interacting]
     Active Substance: PANTOPRAZOLE SODIUM
  2. RAMIPRIL. [Interacting]
     Active Substance: RAMIPRIL
     Route: 065
  3. GLIPIZIDE. [Interacting]
     Active Substance: GLIPIZIDE
     Route: 065
  4. SOLOSTAR [Concomitant]
     Active Substance: DEVICE
     Dates: start: 2005
  5. LANTUS [Interacting]
     Active Substance: INSULIN GLARGINE
     Indication: DIABETES MELLITUS
     Dosage: DOSE:30 UNIT(S)
     Route: 065
     Dates: start: 2005
  6. LASIX [Suspect]
     Active Substance: FUROSEMIDE
     Indication: CARDIAC DISORDER
     Route: 065
  7. CRESTOR [Interacting]
     Active Substance: ROSUVASTATIN CALCIUM
     Route: 065
  8. ALPRAZOLAM. [Concomitant]
     Active Substance: ALPRAZOLAM
     Dates: start: 2007
  9. METFORMIN [Interacting]
     Active Substance: METFORMIN HYDROCHLORIDE
     Indication: DIABETES MELLITUS
     Route: 065
     Dates: start: 2005
  10. SALBUTAMOL [Concomitant]
     Active Substance: ALBUTEROL
     Dates: start: 2005
  11. ASPIRIN. [Interacting]
     Active Substance: ASPIRIN
     Route: 065
  12. LYRICA [Interacting]
     Active Substance: PREGABALIN
     Route: 065
     Dates: start: 2007
  13. PLAVIX [Suspect]
     Active Substance: CLOPIDOGREL BISULFATE
     Route: 065
  14. PERCOCET [Concomitant]
     Active Substance: ACETAMINOPHEN\OXYCODONE HYDROCHLORIDE
     Dates: start: 2007

REACTIONS (7)
  - Drug interaction [Unknown]
  - Joint swelling [Unknown]
  - Gait disturbance [Unknown]
  - Peripheral swelling [Unknown]
  - Myalgia [Unknown]
  - Dysuria [Unknown]
  - Drug ineffective [Unknown]

NARRATIVE: CASE EVENT DATE: 2007
